FAERS Safety Report 13694594 (Version 5)
Quarter: 2018Q1

REPORT INFORMATION
  Report Type: Spontaneous
  Country: BR (occurrence: BR)
  Receive Date: 20170627
  Receipt Date: 20180122
  Transmission Date: 20180508
  Serious: Yes (Other)
  Sender: FDA-Public Use
  Company Number: BR-ELI_LILLY_AND_COMPANY-BR201704001013

PATIENT
  Age: 82 Year
  Sex: Female

DRUGS (2)
  1. FORTEO [Suspect]
     Active Substance: TERIPARATIDE
     Indication: OSTEOPOROSIS
     Dosage: 20 UG, UNKNOWN
     Route: 058
  2. FORTEO [Suspect]
     Active Substance: TERIPARATIDE
     Dosage: 20 UG, UNKNOWN
     Route: 058
     Dates: start: 201703

REACTIONS (12)
  - Injection site mass [Unknown]
  - Injection site erythema [Not Recovered/Not Resolved]
  - Injection site induration [Unknown]
  - Vertigo [Unknown]
  - Road traffic accident [Unknown]
  - Injection site pain [Unknown]
  - Underdose [Unknown]
  - Depression [Unknown]
  - Injection site erythema [Recovering/Resolving]
  - Decreased appetite [Unknown]
  - Injection site haemorrhage [Unknown]
  - Weight decreased [Recovering/Resolving]

NARRATIVE: CASE EVENT DATE: 20170123
